FAERS Safety Report 10265679 (Version 1)
Quarter: 2014Q2

REPORT INFORMATION
  Report Type: Spontaneous
  Country: US (occurrence: US)
  Receive Date: 20140627
  Receipt Date: 20140627
  Transmission Date: 20141212
  Serious: Yes (Other)
  Sender: FDA-Public Use
  Company Number: CHPA2014US008616

PATIENT
  Age: 87 Year
  Sex: Female

DRUGS (2)
  1. VOLTAREN GEL [Suspect]
     Indication: WRIST FRACTURE
     Dosage: UNK
     Dates: start: 20140622
  2. VOLTAREN GEL [Suspect]
     Indication: OFF LABEL USE

REACTIONS (1)
  - Blood glucose increased [Not Recovered/Not Resolved]
